FAERS Safety Report 23492724 (Version 2)
Quarter: 2024Q1

REPORT INFORMATION
  Report Type: Spontaneous
  Country: US (occurrence: US)
  Receive Date: 20240207
  Receipt Date: 20240222
  Transmission Date: 20240410
  Serious: Yes (Other)
  Sender: FDA-Public Use
  Company Number: US-AUROBINDO-AUR-APL-2024-005045

PATIENT
  Age: 88 Year
  Sex: Female
  Weight: 56.6 kg

DRUGS (2)
  1. CLOPIDOGREL [Suspect]
     Active Substance: CLOPIDOGREL BISULFATE
     Indication: Myocardial infarction
     Dosage: 1 DOSAGE FORM, ONCE A DAY (01 PILLS A DAY IN THE MORNING)
     Route: 065
     Dates: start: 20230806
  2. ASPIRIN [Concomitant]
     Active Substance: ASPIRIN
     Indication: Product used for unknown indication
     Dosage: UNK
     Route: 065

REACTIONS (5)
  - Glaucoma [Unknown]
  - Purpura [Not Recovered/Not Resolved]
  - Epistaxis [Unknown]
  - Visual impairment [Unknown]
  - Haemorrhoids [Recovered/Resolved]

NARRATIVE: CASE EVENT DATE: 20240125
